FAERS Safety Report 7978580-9 (Version None)
Quarter: 2011Q4

REPORT INFORMATION
  Report Type: 
  Country: None (occurrence: None)
  Receive Date: 20111129
  Receipt Date: 20110627
  Transmission Date: 20120403
  Serious: No
  Sender: FDA-Public Use
  Company Number: PHHY2011US57964

PATIENT
  Age: 76 Year
  Sex: Female

DRUGS (12)
  1. OXYCODONE HCL [Concomitant]
  2. FLUDROCORTISONE ACETATE [Concomitant]
  3. CORTEF [Concomitant]
  4. AFINITOR [Suspect]
     Indication: NEUROENDOCRINE CARCINOMA
     Dosage: 10 MG, QD, ORAL
     Route: 048
     Dates: start: 20110310
  5. RITALIN [Concomitant]
  6. REMERON [Concomitant]
  7. LEVAQUIN [Concomitant]
  8. MULTIVITAMIN [Concomitant]
  9. VITAMIN D [Concomitant]
  10. LISINOPRIL [Concomitant]
  11. FENTANYL [Concomitant]
  12. ZOFRAN [Concomitant]

REACTIONS (4)
  - ERYTHEMA [None]
  - COUGH [None]
  - VENOUS INSUFFICIENCY [None]
  - DIARRHOEA [None]
